FAERS Safety Report 24063903 (Version 12)
Quarter: 2025Q1

REPORT INFORMATION
  Report Type: Spontaneous
  Country: US (occurrence: US)
  Receive Date: 20240709
  Receipt Date: 20250115
  Transmission Date: 20250409
  Serious: Yes (Hospitalization, Other)
  Sender: IPSEN BIOPHARMACEUTICALS, INC.
  Company Number: US-IPSEN Group, Research and Development-2023-19685

PATIENT
  Age: 85 Year
  Sex: Female
  Weight: 53 kg

DRUGS (42)
  1. TAZVERIK [Suspect]
     Active Substance: TAZEMETOSTAT HYDROBROMIDE
     Indication: Follicular lymphoma stage I
     Dosage: 800 MG, TWICE DAILY.
     Route: 048
     Dates: start: 20230728
  2. ACETAMINOPHEN [Concomitant]
     Active Substance: ACETAMINOPHEN
     Route: 048
  3. ACETAMINOPHEN [Concomitant]
     Active Substance: ACETAMINOPHEN
     Route: 048
  4. ALLOPURINOL [Concomitant]
     Active Substance: ALLOPURINOL
  5. ASPERCREME [Concomitant]
  6. BRINZOLAMIDE [Concomitant]
     Active Substance: BRINZOLAMIDE
  7. DIPHENHYDRAMINE [Concomitant]
     Active Substance: DIPHENHYDRAMINE
  8. ELIQUIS [Concomitant]
     Active Substance: APIXABAN
     Route: 048
  9. ELIQUIS [Concomitant]
     Active Substance: APIXABAN
     Route: 048
  10. FAMOTIDINE [Concomitant]
     Active Substance: FAMOTIDINE
     Route: 048
  11. FAMOTIDINE [Concomitant]
     Active Substance: FAMOTIDINE
     Route: 048
  12. GLUCOSAMINE [Concomitant]
     Active Substance: GLUCOSAMINE
     Route: 048
  13. GLUCOSAMINE [Concomitant]
     Active Substance: GLUCOSAMINE
     Route: 048
  14. CALCIUM +VIT D3 [Concomitant]
  15. METOPROLOL [Concomitant]
     Active Substance: METOPROLOL
  16. METOPROLOL [Concomitant]
     Active Substance: METOPROLOL
  17. NYSTATIN [Concomitant]
     Active Substance: NYSTATIN
  18. NYSTATIN [Concomitant]
     Active Substance: NYSTATIN
  19. TIMOLOL MALEATE [Concomitant]
     Active Substance: TIMOLOL MALEATE
     Route: 047
  20. TIMOLOL MALEATE [Concomitant]
     Active Substance: TIMOLOL MALEATE
     Route: 047
  21. TRAVOPROST [Concomitant]
     Active Substance: TRAVOPROST
  22. TRAVOPROST [Concomitant]
     Active Substance: TRAVOPROST
  23. FUROSEMIDE [Concomitant]
     Active Substance: FUROSEMIDE
  24. DIGOXIN [Concomitant]
     Active Substance: DIGOXIN
  25. VITAMIN D3 [Concomitant]
     Active Substance: CHOLECALCIFEROL
  26. SB SALINE NOSE [Concomitant]
  27. LOSARTAN [Concomitant]
     Active Substance: LOSARTAN
  28. DIPHENHYDRAMINE [Concomitant]
     Active Substance: DIPHENHYDRAMINE
  29. DOXYCYCLINE HYCLATE [Concomitant]
     Active Substance: DOXYCYCLINE HYCLATE
  30. AZOPT [Concomitant]
     Active Substance: BRINZOLAMIDE
     Route: 047
  31. AZOPT [Concomitant]
     Active Substance: BRINZOLAMIDE
     Route: 047
  32. CALCIUM CARBONATE\VITAMIN D [Concomitant]
     Active Substance: CALCIUM CARBONATE\VITAMIN D
     Route: 048
  33. CALCIUM CARBONATE\VITAMIN D [Concomitant]
     Active Substance: CALCIUM CARBONATE\VITAMIN D
     Route: 048
  34. LOPERAMIDE HYDROCHLORIDE [Concomitant]
     Active Substance: LOPERAMIDE HYDROCHLORIDE
     Route: 048
  35. LOPERAMIDE HYDROCHLORIDE [Concomitant]
     Active Substance: LOPERAMIDE HYDROCHLORIDE
     Route: 048
  36. COZAAR [Concomitant]
     Active Substance: LOSARTAN POTASSIUM
     Route: 048
  37. COZAAR [Concomitant]
     Active Substance: LOSARTAN POTASSIUM
     Route: 048
  38. VITAMINS [Concomitant]
     Active Substance: VITAMINS
  39. TRAVATAN Z [Concomitant]
     Active Substance: TRAVOPROST
     Route: 047
  40. TRAVATAN Z [Concomitant]
     Active Substance: TRAVOPROST
     Route: 047
  41. TYLENOL [Concomitant]
     Active Substance: ACETAMINOPHEN
     Route: 047
  42. TYLENOL [Concomitant]
     Active Substance: ACETAMINOPHEN
     Route: 047

REACTIONS (28)
  - Pneumonia [Recovering/Resolving]
  - Cardiac failure [Unknown]
  - Pericardial effusion [Unknown]
  - Pulmonary oedema [Unknown]
  - Pneumothorax [Not Recovered/Not Resolved]
  - Epistaxis [Recovered/Resolved]
  - Epistaxis [Recovered/Resolved]
  - Dyspnoea [Not Recovered/Not Resolved]
  - Nausea [Unknown]
  - Fatigue [Not Recovered/Not Resolved]
  - Peripheral swelling [Not Recovered/Not Resolved]
  - Pain [Unknown]
  - Rash [Recovering/Resolving]
  - Weight decreased [Unknown]
  - Cough [Not Recovered/Not Resolved]
  - Vaginal haemorrhage [Not Recovered/Not Resolved]
  - Oedema peripheral [Unknown]
  - Heart rate increased [Unknown]
  - Tachycardia [Unknown]
  - Sinusitis [Not Recovered/Not Resolved]
  - Epistaxis [Not Recovered/Not Resolved]
  - Nasopharyngitis [Not Recovered/Not Resolved]
  - Malaise [Unknown]
  - Dermatitis contact [Recovering/Resolving]
  - Contusion [Not Recovered/Not Resolved]
  - Rash [Not Recovered/Not Resolved]
  - Epistaxis [Not Recovered/Not Resolved]
  - Product dose omission issue [Unknown]

NARRATIVE: CASE EVENT DATE: 20240301
